FAERS Safety Report 20481007 (Version 1)
Quarter: 2022Q1

REPORT INFORMATION
  Report Type: Spontaneous
  Country: US (occurrence: None)
  Receive Date: 20220216
  Receipt Date: 20220216
  Transmission Date: 20220423
  Serious: Yes (Death, Hospitalization)
  Sender: FDA-Public Use
  Company Number: None

PATIENT
  Age: 43 Year
  Sex: Female
  Weight: 54.6 kg

DRUGS (2)
  1. PERTUZUMAB [Suspect]
     Active Substance: PERTUZUMAB
     Dates: end: 20211223
  2. TRASTUZUMAB [Suspect]
     Active Substance: TRASTUZUMAB
     Dates: end: 20211223

REACTIONS (7)
  - SARS-CoV-2 test positive [None]
  - Loss of consciousness [None]
  - Cardiac arrest [None]
  - Alcohol test positive [None]
  - Drug abuse [None]
  - Drug abuse [None]
  - Brain injury [None]

NARRATIVE: CASE EVENT DATE: 20220114
